FAERS Safety Report 14659616 (Version 1)
Quarter: 2018Q1

REPORT INFORMATION
  Report Type: Spontaneous
  Country: FR (occurrence: FR)
  Receive Date: 20180320
  Receipt Date: 20180320
  Transmission Date: 20180509
  Serious: Yes (Hospitalization)
  Sender: FDA-Public Use
  Company Number: FR-TEVA-2018-FR-870007

PATIENT
  Age: 86 Year
  Sex: Female

DRUGS (18)
  1. PIVALONE [Concomitant]
     Active Substance: TIXOCORTOL PIVALATE
  2. FEXOFENADINE [Concomitant]
     Active Substance: FEXOFENADINE\FEXOFENADINE HYDROCHLORIDE
  3. TRINITRINE [Concomitant]
     Active Substance: NITROGLYCERIN
  4. AUGMENTIN [Suspect]
     Active Substance: AMOXICILLIN\CLAVULANATE POTASSIUM
     Indication: LUNG DISORDER
     Route: 042
  5. LASILIX [Concomitant]
     Active Substance: FUROSEMIDE
     Route: 048
  6. ATARAX [Concomitant]
     Active Substance: HYDROXYZINE HYDROCHLORIDE
  7. DIFFU K [Concomitant]
     Active Substance: POTASSIUM CHLORIDE
  8. TRAMADOL BASE [Concomitant]
     Active Substance: TRAMADOL
     Route: 048
  9. PANTOPRAZOLE [Concomitant]
     Active Substance: PANTOPRAZOLE
  10. SEBIPROX [Concomitant]
  11. VITAMINE B12 [Concomitant]
     Active Substance: CYANOCOBALAMIN
  12. NEBIVOLOL. [Concomitant]
     Active Substance: NEBIVOLOL
  13. CRESTOR [Concomitant]
     Active Substance: ROSUVASTATIN CALCIUM
  14. PAROXETINE. [Suspect]
     Active Substance: PAROXETINE
     Indication: DEPRESSION
     Route: 048
  15. FLECTOR [Suspect]
     Active Substance: DICLOFENAC EPOLAMINE
     Indication: PAIN
     Route: 003
  16. RAMIPRIL. [Concomitant]
     Active Substance: RAMIPRIL
  17. PLAVIX [Concomitant]
     Active Substance: CLOPIDOGREL BISULFATE
  18. ACIDE FOLIQUE [Concomitant]
     Active Substance: FOLIC ACID

REACTIONS (2)
  - Cell death [Recovered/Resolved]
  - Cholestasis [Recovering/Resolving]
